FAERS Safety Report 5373811-6 (Version None)
Quarter: 2007Q2

REPORT INFORMATION
  Report Type: 
  Country: None (occurrence: None)
  Receive Date: 20070627
  Receipt Date: 20070312
  Transmission Date: 20071010
  Serious: Yes (Other)
  Sender: FDA-Public Use
  Company Number: 487085

PATIENT
  Age: 76 Year
  Sex: Male
  Weight: 77.1 kg

DRUGS (1)
  1. XELODA [Suspect]
     Indication: COLORECTAL CANCER
     Dosage: 1000 MG 2 PER DAY

REACTIONS (1)
  - DIARRHOEA [None]
